FAERS Safety Report 5351143-X (Version None)
Quarter: 2007Q2

REPORT INFORMATION
  Report Type: 
  Country: None (occurrence: None)
  Receive Date: 20070606
  Receipt Date: 20070531
  Transmission Date: 20071010
  Serious: Yes (Other)
  Sender: FDA-Public Use
  Company Number: 2007SP008533

PATIENT
  Age: 42 Year
  Sex: Male

DRUGS (4)
  1. CLARITIN [Suspect]
     Indication: LACRIMATION INCREASED
     Dosage: 10 MG;ONCE;PO
     Route: 048
     Dates: start: 20070427, end: 20070427
  2. CLARITIN [Suspect]
     Indication: SINUS CONGESTION
     Dosage: 10 MG;ONCE;PO
     Route: 048
     Dates: start: 20070427, end: 20070427
  3. CLARITIN [Suspect]
     Indication: SNEEZING
     Dosage: 10 MG;ONCE;PO
     Route: 048
     Dates: start: 20070427, end: 20070427
  4. GUAIFENESIN [Suspect]
     Indication: DRUG USE FOR UNKNOWN INDICATION

REACTIONS (5)
  - DRY MOUTH [None]
  - GINGIVAL SWELLING [None]
  - LIP SWELLING [None]
  - OEDEMA MOUTH [None]
  - SWOLLEN TONGUE [None]
